FAERS Safety Report 9958689 (Version 1)
Quarter: 2014Q1

REPORT INFORMATION
  Report Type: Spontaneous
  Country: US (occurrence: None)
  Receive Date: 20140228
  Receipt Date: 20140228
  Transmission Date: 20141002
  Serious: Yes (Death)
  Sender: FDA-Public Use
  Company Number: None

PATIENT
  Age: 70 Year
  Sex: Male

DRUGS (1)
  1. IMBRUVICA [Suspect]
     Indication: LYMPHOMA
     Route: 048
     Dates: start: 20131227, end: 20140213

REACTIONS (3)
  - Unevaluable event [None]
  - Lymphoma [None]
  - Malignant neoplasm progression [None]
